FAERS Safety Report 4364397-3 (Version None)
Quarter: 2004Q2

REPORT INFORMATION
  Report Type: 
  Country: None (occurrence: None)
  Receive Date: 20040521
  Receipt Date: 20040510
  Transmission Date: 20050107
  Serious: Yes (Death, Hospitalization)
  Sender: FDA-Public Use
  Company Number: 04-05-0703

PATIENT
  Age: 59 Year
  Sex: Female

DRUGS (1)
  1. CLOZAPINE [Suspect]
     Dosage: 550-700MG QD ORAL
     Route: 048
     Dates: start: 19990901, end: 20040401

REACTIONS (1)
  - CEREBROVASCULAR ACCIDENT [None]
